FAERS Safety Report 22792277 (Version 2)
Quarter: 2023Q4

REPORT INFORMATION
  Report Type: Report from Study
  Country: US (occurrence: US)
  Receive Date: 20230807
  Receipt Date: 20231031
  Transmission Date: 20240110
  Serious: Yes (Other)
  Sender: FDA-Public Use
  Company Number: US-ABBVIE-5355459

PATIENT
  Sex: Male

DRUGS (1)
  1. SKYRIZI [Suspect]
     Active Substance: RISANKIZUMAB-RZAA
     Indication: Psoriasis
     Route: 058

REACTIONS (13)
  - Gastric cancer [Not Recovered/Not Resolved]
  - Colon neoplasm [Unknown]
  - Central nervous system lesion [Unknown]
  - Diarrhoea [Unknown]
  - Hepatic cirrhosis [Unknown]
  - Loss of consciousness [Unknown]
  - Fall [Unknown]
  - Balance disorder [Unknown]
  - Memory impairment [Unknown]
  - Headache [Unknown]
  - Hepatomegaly [Unknown]
  - Cerebral cavernous malformation [Unknown]
  - Hypoaesthesia [Unknown]
